FAERS Safety Report 25893723 (Version 1)
Quarter: 2025Q4

REPORT INFORMATION
  Report Type: Spontaneous
  Country: US (occurrence: US)
  Receive Date: 20251008
  Receipt Date: 20251008
  Transmission Date: 20260118
  Serious: No
  Sender: BAUSCH AND LOMB
  Company Number: US-BAUSCHBL-2025BNL029469

PATIENT
  Age: 49 Year
  Sex: Female

DRUGS (1)
  1. MIEBO [Suspect]
     Active Substance: PERFLUOROHEXYLOCTANE
     Indication: Product used for unknown indication
     Route: 065
     Dates: start: 20250919, end: 202509

REACTIONS (1)
  - Tracheal inflammation [Recovered/Resolved]

NARRATIVE: CASE EVENT DATE: 20250919
